FAERS Safety Report 5731414-5 (Version None)
Quarter: 2008Q2

REPORT INFORMATION
  Report Type: 
  Country: None (occurrence: None)
  Receive Date: 20080508
  Receipt Date: 20080428
  Transmission Date: 20081010
  Serious: Yes (Hospitalization, Other)
  Sender: FDA-Public Use
  Company Number: PHBS2008NL04371

PATIENT
  Age: 53 Year
  Sex: Male

DRUGS (4)
  1. BACLOFEN [Suspect]
     Indication: MUSCLE SPASTICITY
     Dosage: 0.2 ML/H
     Route: 037
  2. BACLOFEN [Suspect]
     Dosage: 5 MG
     Route: 048
  3. BACLOFEN [Suspect]
     Dosage: INCREASED TO 30 MG/DAY
     Route: 048
  4. BENZODIAZEPINES [Suspect]

REACTIONS (16)
  - BRADYCARDIA [None]
  - CARDIAC ARREST [None]
  - CARDIAC FAILURE [None]
  - CARDIAC OUTPUT DECREASED [None]
  - CARDIAC PACEMAKER INSERTION [None]
  - CIRCULATORY COLLAPSE [None]
  - DELIRIUM [None]
  - HALLUCINATION [None]
  - HYPERDYNAMIC PRECORDIUM [None]
  - HYPERVENTILATION [None]
  - HYPOTENSION [None]
  - MUSCLE SPASTICITY [None]
  - OXYGEN SATURATION DECREASED [None]
  - PACEMAKER GENERATED RHYTHM [None]
  - PARANOIA [None]
  - RESPIRATORY FAILURE [None]
